FAERS Safety Report 8603370-3 (Version None)
Quarter: 2012Q3

REPORT INFORMATION
  Report Type: 
  Country: None (occurrence: None)
  Receive Date: 20120817
  Receipt Date: 20120702
  Transmission Date: 20120928
  Serious: Yes (Other)
  Sender: FDA-Public Use
  Company Number: US-009507513-1207USA000385

PATIENT

DRUGS (4)
  1. BONIVA [Suspect]
     Indication: OSTEOPOROSIS
     Dosage: UNK
     Dates: start: 20090901, end: 20120301
  2. BONIVA [Suspect]
     Indication: OSTEOPENIA
  3. FOSAMAX [Suspect]
     Indication: OSTEOPENIA
  4. FOSAMAX [Suspect]
     Indication: OSTEOPOROSIS
     Dosage: UNK
     Dates: start: 19990101, end: 20090901

REACTIONS (2)
  - LOW TURNOVER OSTEOPATHY [None]
  - FEMUR FRACTURE [None]
